FAERS Safety Report 6476446-7 (Version None)
Quarter: 2009Q4

REPORT INFORMATION
  Report Type: 
  Country: None (occurrence: None)
  Receive Date: 20091207
  Receipt Date: 20091125
  Transmission Date: 20100525
  Serious: Yes (Hospitalization, Other)
  Sender: FDA-Public Use
  Company Number: GB-RANBAXY-2007RR-07278

PATIENT
  Age: 17 Year
  Sex: Male

DRUGS (3)
  1. PARACETAMOL [Suspect]
     Dosage: 500 MG, UNK
     Dates: start: 20070327
  2. CONCERTA [Suspect]
     Indication: ATTENTION DEFICIT/HYPERACTIVITY DISORDER
     Dosage: 54 MG, QD
     Route: 048
  3. CONCERTA [Suspect]
     Dosage: 18 MG, UNK
     Route: 048
     Dates: start: 20050101, end: 20070327

REACTIONS (2)
  - LIVER FUNCTION TEST ABNORMAL [None]
  - OVERDOSE [None]
